FAERS Safety Report 6746211-1 (Version None)
Quarter: 2010Q2

REPORT INFORMATION
  Report Type: 
  Country: None (occurrence: None)
  Receive Date: 20100528
  Receipt Date: 20100301
  Transmission Date: 20101027
  Serious: No
  Sender: FDA-Public Use
  Company Number: US-ASTRAZENECA-2010SE08928

PATIENT
  Age: 79 Year
  Sex: Male

DRUGS (2)
  1. OMEPRAZOLE [Suspect]
     Indication: GASTROOESOPHAGEAL REFLUX DISEASE
     Route: 048
  2. CILOSTAZOL [Interacting]
     Indication: PERIPHERAL VASCULAR DISORDER
     Route: 048
     Dates: start: 20100221, end: 20100221

REACTIONS (2)
  - DRUG INTERACTION [None]
  - HEADACHE [None]
